FAERS Safety Report 8010853-6 (Version None)
Quarter: 2011Q4

REPORT INFORMATION
  Report Type: 
  Country: None (occurrence: None)
  Receive Date: 20111228
  Receipt Date: 20111220
  Transmission Date: 20120403
  Serious: Yes (Hospitalization)
  Sender: FDA-Public Use
  Company Number: PHHY2011GB110687

PATIENT
  Age: 61 Year
  Sex: Male

DRUGS (1)
  1. CITALOPRAM HYDROBROMIDE [Suspect]
     Indication: DEPRESSION
     Dosage: 20 MG, UNK
     Route: 048
     Dates: start: 20110928, end: 20111006

REACTIONS (5)
  - CONFUSIONAL STATE [None]
  - DISINHIBITION [None]
  - PARANOIA [None]
  - AGITATION [None]
  - PSYCHOTIC DISORDER [None]
